FAERS Safety Report 11111254 (Version 1)
Quarter: 2015Q2

REPORT INFORMATION
  Report Type: Other
  Country: DE (occurrence: DE)
  Receive Date: 20150513
  Receipt Date: 20150513
  Transmission Date: 20150821
  Serious: Yes (Other)
  Sender: FDA-Public Use
  Company Number: DE-MYLANLABS-2015M1014527

PATIENT

DRUGS (3)
  1. DOPEGYT [Concomitant]
     Active Substance: METHYLDOPA
     Indication: HYPERTENSION
     Dosage: 250 MG, TID (750 [MG/D ])
     Route: 064
  2. FOLIO [Concomitant]
     Active Substance: FOLIC ACID
     Indication: PROPHYLAXIS OF NEURAL TUBE DEFECT
     Dosage: 0.4 MG, QD (0.4 [MG/D ])
     Route: 064
  3. VENLAFAXINE [Suspect]
     Active Substance: VENLAFAXINE HYDROCHLORIDE
     Indication: DEPRESSION
     Dosage: 150 MG, QD (150 [MG/D ]/ DOSE REDUCTION TO 75 MG/D IN THE BEGINNING OF THE 2ND TRIMESTER (~ WEEK 14)
     Route: 064
     Dates: start: 20140403, end: 20150103

REACTIONS (2)
  - Cerebral haemorrhage neonatal [Recovered/Resolved with Sequelae]
  - Foetal exposure during pregnancy [Unknown]
